FAERS Safety Report 7090775-8 (Version None)
Quarter: 2010Q4

REPORT INFORMATION
  Report Type: 
  Country: None (occurrence: None)
  Receive Date: 20101012
  Receipt Date: 20100816
  Transmission Date: 20110411
  Serious: No
  Sender: FDA-Public Use
  Company Number: US_001262

PATIENT
  Age: 14 Year
  Sex: Female
  Weight: 54.8852 kg

DRUGS (5)
  1. KUVAN [Suspect]
     Indication: PHENYLKETONURIA
     Dosage: 1100 MG QD, ORAL
     Route: 048
     Dates: start: 20100701
  2. ALLEGRA [Concomitant]
  3. FLOVENT [Concomitant]
  4. NASONEX [Concomitant]
  5. ALBUTEROL [Concomitant]

REACTIONS (2)
  - PRODUCT TASTE ABNORMAL [None]
  - THROAT IRRITATION [None]
